FAERS Safety Report 10049837 (Version 1)
Quarter: 2014Q1

REPORT INFORMATION
  Report Type: Spontaneous
  Country: US (occurrence: None)
  Receive Date: 20140331
  Receipt Date: 20140331
  Transmission Date: 20141002
  Serious: No
  Sender: FDA-Public Use
  Company Number: None

PATIENT
  Sex: Female

DRUGS (1)
  1. TECFIDERA [Suspect]
     Indication: MULTIPLE SCLEROSIS
     Route: 048
     Dates: start: 20131128, end: 20140322

REACTIONS (6)
  - Nausea [None]
  - Headache [None]
  - Diarrhoea [None]
  - Alopecia [None]
  - Dry skin [None]
  - Blood thyroid stimulating hormone decreased [None]
